FAERS Safety Report 14535293 (Version 8)
Quarter: 2019Q3

REPORT INFORMATION
  Report Type: Report from Study
  Country: CA (occurrence: CA)
  Receive Date: 20180215
  Receipt Date: 20190924
  Transmission Date: 20191004
  Serious: Yes (Hospitalization, Other)
  Sender: FDA-Public Use
  Company Number: CA-GLAXOSMITHKLINE-CA2017203304

PATIENT
  Age: 75 Year
  Sex: Female

DRUGS (9)
  1. XOLAIR [Suspect]
     Active Substance: OMALIZUMAB
     Dosage: UNK
     Route: 058
     Dates: start: 20170919
  2. XOLAIR [Suspect]
     Active Substance: OMALIZUMAB
     Dosage: 375 MG, BIW
     Route: 058
     Dates: start: 20190219
  3. DICLOFENAC SODIUM. [Suspect]
     Active Substance: DICLOFENAC SODIUM
     Indication: COSTOCHONDRITIS
  4. XOLAIR [Suspect]
     Active Substance: OMALIZUMAB
     Dosage: UNK
     Route: 058
     Dates: start: 20180123
  5. XOLAIR [Suspect]
     Active Substance: OMALIZUMAB
     Dosage: 375 MG, BIW
     Route: 058
     Dates: start: 20190205
  6. XOLAIR [Suspect]
     Active Substance: OMALIZUMAB
     Dosage: 375 MG, BIW
     Route: 058
     Dates: start: 20190903
  7. XOLAIR [Suspect]
     Active Substance: OMALIZUMAB
     Indication: ASTHMA
     Dosage: 375 MG, BIW
     Route: 058
     Dates: start: 20131101
  8. XOLAIR [Suspect]
     Active Substance: OMALIZUMAB
     Dosage: 375 MG, BIW
     Route: 058
     Dates: start: 20181002
  9. DICLOFENAC SODIUM. [Suspect]
     Active Substance: DICLOFENAC SODIUM
     Indication: MUSCULOSKELETAL CHEST PAIN
     Dosage: UNK
     Route: 065

REACTIONS (12)
  - Costochondritis [Unknown]
  - Dementia Alzheimer^s type [Recovering/Resolving]
  - Nasopharyngitis [Unknown]
  - Cough [Not Recovered/Not Resolved]
  - Productive cough [Unknown]
  - Musculoskeletal chest pain [Recovering/Resolving]
  - Rhinorrhoea [Not Recovered/Not Resolved]
  - Dyspnoea [Not Recovered/Not Resolved]
  - Pyrexia [Unknown]
  - Influenza [Unknown]
  - Fatigue [Recovering/Resolving]
  - Asthenia [Unknown]

NARRATIVE: CASE EVENT DATE: 2017
